FAERS Safety Report 5012637-X (Version None)
Quarter: 2006Q2

REPORT INFORMATION
  Report Type: 
  Country: None (occurrence: None)
  Receive Date: 20060411
  Receipt Date: 20060220
  Transmission Date: 20061013
  Serious: Yes (Other)
  Sender: FDA-Public Use
  Company Number: 413938

PATIENT
  Age: 34 Year
  Sex: Male
  Weight: 60.8 kg

DRUGS (7)
  1. FUZEON [Suspect]
     Indication: HIV INFECTION
     Dosage: 90 MG/ML 2 PER DAY SUBCUTANEOUS
     Route: 058
     Dates: start: 20040922
  2. COMBIVIR [Concomitant]
  3. VIREAD [Concomitant]
  4. PEPCID [Concomitant]
  5. WELLBUTRIN [Concomitant]
  6. NAPROSYN [Concomitant]
  7. TYLOX (OXYCODONE/PARACETAMOL) [Concomitant]

REACTIONS (4)
  - BRONCHOPNEUMONIA [None]
  - INJECTION SITE REACTION [None]
  - URINARY TRACT INFECTION [None]
  - VIRAL LOAD INCREASED [None]
